FAERS Safety Report 17533755 (Version 1)
Quarter: 2020Q1

REPORT INFORMATION
  Report Type: Spontaneous
  Country: US (occurrence: US)
  Receive Date: 20200312
  Receipt Date: 20200312
  Transmission Date: 20200409
  Serious: Yes (Other)
  Sender: FDA-Public Use
  Company Number: None

PATIENT
  Age: 70 Year
  Sex: Female

DRUGS (1)
  1. ERDAFITINIB. [Suspect]
     Active Substance: ERDAFITINIB
     Indication: SMALL INTESTINE CARCINOMA

REACTIONS (2)
  - Nail avulsion [None]
  - Skin hypertrophy [None]

NARRATIVE: CASE EVENT DATE: 20200210
